FAERS Safety Report 10745461 (Version 1)
Quarter: 2015Q1

REPORT INFORMATION
  Report Type: Spontaneous
  Country: IL (occurrence: IL)
  Receive Date: 20150128
  Receipt Date: 20150128
  Transmission Date: 20150721
  Serious: Yes (Death, Other)
  Sender: FDA-Public Use
  Company Number: IL-ASTRAZENECA-2015SE00163

PATIENT
  Age: 64 Year
  Sex: Male
  Weight: 97 kg

DRUGS (2)
  1. ASPIRIN. [Suspect]
     Active Substance: ASPIRIN
     Route: 065
     Dates: start: 20141202, end: 20141226
  2. BRILINTA [Suspect]
     Active Substance: TICAGRELOR
     Indication: ACUTE MYOCARDIAL INFARCTION
     Route: 048
     Dates: start: 20141201, end: 20141226

REACTIONS (6)
  - Fall [Fatal]
  - Bradycardia [None]
  - Head injury [Fatal]
  - Coma [None]
  - Blood pressure systolic increased [None]
  - Cerebral haemorrhage [Fatal]
